FAERS Safety Report 6372679-9 (Version None)
Quarter: 2009Q3

REPORT INFORMATION
  Report Type: 
  Country: None (occurrence: None)
  Receive Date: 20090924
  Receipt Date: 20090410
  Transmission Date: 20100115
  Serious: Yes (Other)
  Sender: FDA-Public Use
  Company Number: US-ASTRAZENECA-2008UW27562

PATIENT
  Age: 32 Year
  Sex: Male
  Weight: 108.9 kg

DRUGS (7)
  1. SEROQUEL [Suspect]
     Indication: SLEEP DISORDER
     Route: 048
     Dates: start: 20020101, end: 20070101
  2. SEROQUEL [Suspect]
     Indication: DEPRESSION
     Route: 048
     Dates: start: 20020101, end: 20070101
  3. ABILIFY [Concomitant]
  4. RISPERDAL [Concomitant]
  5. STELAZINE [Concomitant]
  6. THORAZINE [Concomitant]
  7. WELLBUTRIN SR [Concomitant]

REACTIONS (3)
  - BACK INJURY [None]
  - DIABETES MELLITUS [None]
  - SUICIDAL IDEATION [None]
